FAERS Safety Report 19354734 (Version 1)
Quarter: 2021Q2

REPORT INFORMATION
  Report Type: Spontaneous
  Country: GT (occurrence: GT)
  Receive Date: 20210602
  Receipt Date: 20210602
  Transmission Date: 20210717
  Serious: Yes (Hospitalization)
  Sender: FDA-Public Use
  Company Number: GT-CELLTRION INC.-2021GT007272

PATIENT

DRUGS (1)
  1. TRUXIMA [Suspect]
     Active Substance: RITUXIMAB-ABBS
     Indication: NON-HODGKIN^S LYMPHOMA
     Dosage: IN MAINTENANCE
     Dates: end: 20210518

REACTIONS (1)
  - Skin injury [Unknown]

NARRATIVE: CASE EVENT DATE: 20210520
